FAERS Safety Report 9136008 (Version 1)
Quarter: 2013Q1

REPORT INFORMATION
  Report Type: Spontaneous
  Country: US (occurrence: None)
  Receive Date: 20130227
  Receipt Date: 20130227
  Transmission Date: 20140127
  Serious: Yes (Death)
  Sender: FDA-Public Use
  Company Number: AUR-APL-2013-00464

PATIENT
  Age: 49 Year
  Sex: Female

DRUGS (1)
  1. METOPROLOL (METOPROLOL) [Suspect]
     Route: 048

REACTIONS (1)
  - Toxicity to various agents [None]
